FAERS Safety Report 15473637 (Version 1)
Quarter: 2018Q4

REPORT INFORMATION
  Report Type: Spontaneous
  Country: GB (occurrence: GB)
  Receive Date: 20181008
  Receipt Date: 20181008
  Transmission Date: 20190205
  Serious: Yes (Other)
  Sender: FDA-Public Use
  Company Number: GB-PFIZER INC-2018398765

PATIENT
  Age: 63 Year
  Sex: Male

DRUGS (10)
  1. TESTOSTERONE. [Concomitant]
     Active Substance: TESTOSTERONE
     Dosage: 2.5 G (APPLY)
     Dates: start: 20180427
  2. GLYCERYL TRINITRATE [Concomitant]
     Active Substance: NITROGLYCERIN
     Dosage: 1 DF (PUFF AS NECESSARY)
     Route: 060
     Dates: start: 20180618
  3. BISOPROLOL [Concomitant]
     Active Substance: BISOPROLOL
     Dosage: 1 DF (MORNING)
     Dates: start: 20180716
  4. CETIRIZINE [Concomitant]
     Active Substance: CETIRIZINE HYDROCHLORIDE
     Dosage: (UP TO 4 DAILY AS NECESSARY)
     Dates: start: 20180806, end: 20180821
  5. ACETYLSALICYLIC ACID [Concomitant]
     Active Substance: ASPIRIN
     Dosage: 1 DF, 1X/DAY
     Dates: start: 20180618
  6. OMEPRAZOLE. [Concomitant]
     Active Substance: OMEPRAZOLE
     Dosage: 1 DF 1X/DAY (WHILST TAKING ASPIRIN)
     Dates: start: 20180618
  7. ATORVASTATIN [Concomitant]
     Active Substance: ATORVASTATIN
     Dosage: 1 DF, 1X/DAY
     Dates: start: 20171020
  8. MOMETASONE [Concomitant]
     Active Substance: MOMETASONE
     Dosage: 4 DF, 1X/DAY
     Route: 045
     Dates: start: 20180806, end: 20180910
  9. AMLODIPINE BESILATE [Suspect]
     Active Substance: AMLODIPINE BESYLATE
     Dosage: 5 MG 1X/DAY (MORNING)
     Dates: start: 20180716
  10. FINASTERIDE. [Concomitant]
     Active Substance: FINASTERIDE
     Dosage: AT  QUARTER OF A TABLET , DAILY
     Dates: start: 20180425

REACTIONS (1)
  - Swollen tongue [Recovered/Resolved]

NARRATIVE: CASE EVENT DATE: 20180910
